FAERS Safety Report 6587423-X (Version None)
Quarter: 2010Q1

REPORT INFORMATION
  Report Type: 
  Country: None (occurrence: None)
  Receive Date: 20100217
  Receipt Date: 20100211
  Transmission Date: 20100710
  Serious: Yes (Other)
  Sender: FDA-Public Use
  Company Number: US-ALLERGAN-1000731US

PATIENT
  Age: 9 Year

DRUGS (1)
  1. BOTOX [Suspect]
     Indication: MUSCLE SPASTICITY
     Dosage: UNK
     Route: 030

REACTIONS (2)
  - FACIAL PARESIS [None]
  - MUSCULAR WEAKNESS [None]
